FAERS Safety Report 4427290-3 (Version None)
Quarter: 2004Q3

REPORT INFORMATION
  Report Type: 
  Country: None (occurrence: None)
  Receive Date: 20040817
  Receipt Date: 20040524
  Transmission Date: 20050211
  Serious: Yes (Other)
  Sender: FDA-Public Use
  Company Number: 200415473GDDC

PATIENT
  Age: 30 Year
  Sex: Male

DRUGS (8)
  1. RIFAMPICIN [Suspect]
     Indication: LYMPH NODE TUBERCULOSIS
  2. PYRAZINAMIDE [Suspect]
     Indication: LYMPH NODE TUBERCULOSIS
  3. ISONIAZID [Suspect]
     Indication: LYMPH NODE TUBERCULOSIS
  4. ETHAMBUTOL HCL [Suspect]
     Indication: LYMPH NODE TUBERCULOSIS
  5. STREPTOMYCIN [Suspect]
     Indication: LYMPH NODE TUBERCULOSIS
     Route: 030
  6. CIPROFLOXACIN [Concomitant]
     Indication: LYMPH NODE TUBERCULOSIS
  7. CLARITHROMYCIN [Concomitant]
     Indication: LYMPH NODE TUBERCULOSIS
  8. CLOFAZIMINE [Concomitant]
     Indication: LYMPH NODE TUBERCULOSIS

REACTIONS (3)
  - NAUSEA [None]
  - NEUTROPENIA [None]
  - PHARYNGOLARYNGEAL PAIN [None]
